FAERS Safety Report 25531602 (Version 1)
Quarter: 2025Q3

REPORT INFORMATION
  Report Type: Spontaneous
  Country: US (occurrence: US)
  Receive Date: 20250709
  Receipt Date: 20250709
  Transmission Date: 20251021
  Serious: Yes (Other)
  Sender: Norvium Bioscience
  Company Number: US-Norvium Bioscience LLC-080363

PATIENT
  Age: 24 Year
  Sex: Male
  Weight: 0 kg

DRUGS (2)
  1. CLADRIBINE [Suspect]
     Active Substance: CLADRIBINE
     Indication: Xanthogranuloma
     Dosage: 0.09 MG/KG/DAY
     Route: 042
  2. CLOFARABINE [Suspect]
     Active Substance: CLOFARABINE
     Indication: Xanthogranuloma
     Route: 042

REACTIONS (4)
  - Nausea [Unknown]
  - Vomiting [Unknown]
  - Hepatotoxicity [Unknown]
  - Drug ineffective [Unknown]
